FAERS Safety Report 14731806 (Version 2)
Quarter: 2018Q2

REPORT INFORMATION
  Report Type: Report from Study
  Country: CN (occurrence: CN)
  Receive Date: 20180408
  Receipt Date: 20180515
  Transmission Date: 20180711
  Serious: Yes (Hospitalization, Other)
  Sender: FDA-Public Use
  Company Number: CN-ROCHE-1963124

PATIENT
  Sex: Male
  Weight: 60 kg

DRUGS (3)
  1. AVASTIN [Suspect]
     Active Substance: BEVACIZUMAB
     Route: 041
  2. AVASTIN [Suspect]
     Active Substance: BEVACIZUMAB
     Route: 041
  3. AVASTIN [Suspect]
     Active Substance: BEVACIZUMAB
     Indication: NON-SMALL CELL LUNG CANCER
     Route: 041
     Dates: start: 20170110

REACTIONS (12)
  - Lung infection [Unknown]
  - Red blood cell count decreased [Unknown]
  - Cerebral haemorrhage [Unknown]
  - Discomfort [Unknown]
  - Platelet count decreased [Unknown]
  - Pharyngeal inflammation [Unknown]
  - Hyperpyrexia [Recovering/Resolving]
  - Oropharyngeal discomfort [Unknown]
  - Nasopharyngitis [Recovering/Resolving]
  - Cough [Unknown]
  - Pruritus generalised [Unknown]
  - White blood cell count decreased [Unknown]
